FAERS Safety Report 7499363-2 (Version None)
Quarter: 2011Q2

REPORT INFORMATION
  Report Type: 
  Country: None (occurrence: None)
  Receive Date: 20110524
  Receipt Date: 20110516
  Transmission Date: 20111010
  Serious: Yes (Other)
  Sender: FDA-Public Use
  Company Number: JP-SANOFI-AVENTIS-2011SA030072

PATIENT
  Age: 68 Year
  Sex: Male

DRUGS (6)
  1. FLUDARABINE PHOSPHATE [Suspect]
     Indication: MYELODYSPLASTIC SYNDROME
     Dosage: DOSE: 4 GY
     Route: 065
     Dates: start: 20091201
  2. CYTARABINE [Concomitant]
     Indication: MYELODYSPLASTIC SYNDROME
     Dates: start: 20091201
  3. MYCOPHENOLATE MOFETIL [Concomitant]
     Indication: PROPHYLAXIS AGAINST GRAFT VERSUS HOST DISEASE
     Dates: start: 20091201
  4. THERAPEUTIC RADIOPHARMACEUTICALS [Suspect]
     Indication: MYELODYSPLASTIC SYNDROME
     Route: 065
     Dates: start: 20091201
  5. G-CSF [Suspect]
     Route: 065
     Dates: start: 20091201
  6. TACROLIMUS [Concomitant]
     Indication: PROPHYLAXIS AGAINST GRAFT VERSUS HOST DISEASE
     Dates: start: 20091201

REACTIONS (7)
  - WEIGHT INCREASED [None]
  - PROTHROMBIN TIME PROLONGED [None]
  - NON-CARDIOGENIC PULMONARY OEDEMA [None]
  - DISSEMINATED INTRAVASCULAR COAGULATION [None]
  - ENGRAFTMENT SYNDROME [None]
  - ANTITHROMBIN III DECREASED [None]
  - PYREXIA [None]
